FAERS Safety Report 7250638-1 (Version None)
Quarter: 2011Q1

REPORT INFORMATION
  Report Type: 
  Country: None (occurrence: None)
  Receive Date: 20110128
  Receipt Date: 20110119
  Transmission Date: 20110831
  Serious: Yes (Other)
  Sender: FDA-Public Use
  Company Number: US-JNJFOC-20110105576

PATIENT
  Sex: Female

DRUGS (6)
  1. ASA [Concomitant]
  2. REMICADE [Suspect]
     Indication: PSORIATIC ARTHROPATHY
     Dosage: RECEIVED APPROXIMATELY 5-6 INFUSIONS
     Route: 042
  3. REMICADE [Suspect]
     Dosage: DOSE REPORTED 400-500, 5-7.5 MG/KG
     Route: 042
  4. DOVONEX [Concomitant]
  5. LEXAPRO [Concomitant]
  6. KLONOPIN [Concomitant]

REACTIONS (2)
  - DRUG INEFFECTIVE [None]
  - T-CELL LYMPHOMA [None]
